FAERS Safety Report 18445354 (Version 1)
Quarter: 2020Q4

REPORT INFORMATION
  Report Type: Spontaneous
  Country: US (occurrence: US)
  Receive Date: 20201030
  Receipt Date: 20201030
  Transmission Date: 20210114
  Serious: Yes (Hospitalization, Other)
  Sender: FDA-Public Use
  Company Number: US-TORRENT-00010521

PATIENT
  Age: 77 Year
  Sex: Female

DRUGS (2)
  1. DULOXETINE. [Suspect]
     Active Substance: DULOXETINE
     Indication: PAIN
     Dosage: 60 MG A DAY
  2. METHYLPHENIDATE. [Concomitant]
     Active Substance: METHYLPHENIDATE
     Indication: NARCOLEPSY
     Dosage: 50 MG EXTENDED-RELEASE A DAY

REACTIONS (4)
  - Cataplexy [Recovered/Resolved]
  - Asthenia [Recovered/Resolved]
  - Dry mouth [Unknown]
  - Drug withdrawal syndrome [Recovered/Resolved]
